FAERS Safety Report 23328613 (Version 2)
Quarter: 2024Q2

REPORT INFORMATION
  Report Type: Report from Study
  Country: US (occurrence: US)
  Receive Date: 20231221
  Receipt Date: 20240512
  Transmission Date: 20240716
  Serious: No
  Sender: FDA-Public Use
  Company Number: US-ALXN-A202302529

PATIENT
  Sex: Female

DRUGS (1)
  1. ULTOMIRIS [Suspect]
     Active Substance: RAVULIZUMAB-CWVZ
     Indication: Myasthenia gravis
     Dosage: UNK
     Route: 065

REACTIONS (15)
  - Tongue discomfort [Unknown]
  - Corneal transplant [Unknown]
  - Speech disorder [Unknown]
  - Dysphagia [Unknown]
  - Sinusitis [Unknown]
  - Rhinorrhoea [Unknown]
  - Sneezing [Unknown]
  - Hypersensitivity [Unknown]
  - Facial paresis [Unknown]
  - Muscular weakness [Not Recovered/Not Resolved]
  - Limb injury [Unknown]
  - Dysarthria [Not Recovered/Not Resolved]
  - Fatigue [Unknown]
  - Muscle spasms [Unknown]
  - Myalgia [Unknown]

NARRATIVE: CASE EVENT DATE: 20230117
